FAERS Safety Report 4350841-4 (Version None)
Quarter: 2004Q2

REPORT INFORMATION
  Report Type: 
  Country: None (occurrence: None)
  Receive Date: 20040427
  Receipt Date: 20040419
  Transmission Date: 20050107
  Serious: Yes (Disabling)
  Sender: FDA-Public Use
  Company Number: 7840

PATIENT
  Age: 63 Year
  Sex: Male

DRUGS (14)
  1. METHOTREXATE [Suspect]
     Indication: RHEUMATOID ARTHRITIS
     Dosage: 25 MG WEEKLY
     Route: 048
     Dates: start: 20030930, end: 20040201
  2. WARFARIN SODIUM [Concomitant]
  3. ATORVASTATIN [Concomitant]
  4. ENALAPRIL MALEATE [Concomitant]
  5. FUROSEMIDE [Concomitant]
  6. DIGOXIN [Concomitant]
  7. TRAMADOL HCL [Concomitant]
  8. CO-PROXAMOL [Concomitant]
  9. VERAPAMIL [Concomitant]
  10. CELECOXIB [Concomitant]
  11. HYDROXYCHLOROQUINE SULFATE [Concomitant]
  12. DOXAZOSIN [Concomitant]
  13. SULPHASALAZINE [Concomitant]
  14. PIZOTIFEN [Concomitant]

REACTIONS (2)
  - ASTHMA [None]
  - LOWER RESPIRATORY TRACT INFECTION [None]
